FAERS Safety Report 9461410 (Version 1)
Quarter: 2013Q3

REPORT INFORMATION
  Report Type: Report from Study
  Country: US (occurrence: US)
  Receive Date: 20130816
  Receipt Date: 20130816
  Transmission Date: 20140515
  Serious: Yes (Hospitalization)
  Sender: FDA-Public Use
  Company Number: US-009507513-2011SP006854

PATIENT
  Sex: Female
  Weight: 69.6 kg

DRUGS (6)
  1. BOCEPREVIR [Suspect]
     Indication: HEPATITIS C
     Dosage: 1600 MG, QD
     Route: 048
     Dates: start: 20100413
  2. BOCEPREVIR [Suspect]
     Dosage: 2400 (UNITS UNKNOWN)
     Route: 048
  3. RIBAVIRIN [Suspect]
     Indication: HEPATITIS C
     Dosage: 800 MG, QD
     Route: 048
     Dates: start: 20100317
  4. RIBAVIRIN [Suspect]
     Dosage: 400 MG, QD
     Route: 048
  5. PEGINTERFERON ALFA-2B [Suspect]
     Indication: HEPATITIS C
     Dosage: 96 MICROGRAM, QW
     Route: 058
     Dates: start: 20100317
  6. PRINIVIL [Concomitant]
     Dosage: UNK
     Route: 048

REACTIONS (3)
  - Dehydration [Recovered/Resolved]
  - Syncope [Recovered/Resolved]
  - Blood potassium decreased [Recovered/Resolved]
